FAERS Safety Report 7772163-1 (Version None)
Quarter: 2011Q3

REPORT INFORMATION
  Report Type: 
  Country: None (occurrence: None)
  Receive Date: 20110922
  Receipt Date: 20110609
  Transmission Date: 20111222
  Serious: No
  Sender: FDA-Public Use
  Company Number: US-ASTRAZENECA-2011SE35715

PATIENT
  Age: 44 Year
  Sex: Female

DRUGS (2)
  1. LITHIUM [Concomitant]
  2. SEROQUEL [Suspect]
     Indication: BIPOLAR DISORDER
     Route: 048

REACTIONS (2)
  - DENTAL CARIES [None]
  - TOOTH DISCOLOURATION [None]
